FAERS Safety Report 7163857-X (Version None)
Quarter: 2010Q4

REPORT INFORMATION
  Report Type: 
  Country: None (occurrence: None)
  Receive Date: 20101215
  Receipt Date: 20100625
  Transmission Date: 20110411
  Serious: Yes (Hospitalization)
  Sender: FDA-Public Use
  Company Number: US-PFIZER INC-2010080523

PATIENT
  Sex: Female
  Weight: 54.875 kg

DRUGS (3)
  1. LYRICA [Suspect]
     Indication: FIBROMYALGIA
     Dosage: 300 MG, 2X/DAY
     Route: 048
     Dates: start: 20100623, end: 20100623
  2. PREMPRO [Concomitant]
     Indication: HOT FLUSH
     Dosage: UNK
     Dates: start: 20050101
  3. PREMPRO [Concomitant]
     Indication: MENOPAUSE

REACTIONS (8)
  - ABNORMAL BEHAVIOUR [None]
  - DIZZINESS [None]
  - FEELING ABNORMAL [None]
  - LIP DISORDER [None]
  - LIP OPERATION [None]
  - LOSS OF CONSCIOUSNESS [None]
  - MALAISE [None]
  - SWELLING FACE [None]
